FAERS Safety Report 8549946-3 (Version None)
Quarter: 2012Q3

REPORT INFORMATION
  Report Type: 
  Country: None (occurrence: None)
  Receive Date: 20120730
  Receipt Date: 20120716
  Transmission Date: 20120928
  Serious: Yes (Other)
  Sender: FDA-Public Use
  Company Number: IT-MYLANLABS-2012S1012096

PATIENT
  Age: 64 Year
  Sex: Female

DRUGS (6)
  1. SOLU-CORTEF [Concomitant]
     Indication: PRODUCT USED FOR UNKNOWN INDICATION
  2. DOXORUBICIN HCL [Concomitant]
     Indication: PRODUCT USED FOR UNKNOWN INDICATION
     Route: 042
  3. RANITIDINE HCL [Concomitant]
     Indication: PRODUCT USED FOR UNKNOWN INDICATION
     Route: 042
  4. ONDANSETRON [Concomitant]
     Indication: PRODUCT USED FOR UNKNOWN INDICATION
  5. PACLITAXEL [Suspect]
     Indication: BREAST CANCER STAGE I
     Route: 042
     Dates: start: 20120605, end: 20120605
  6. TRIMETON /00072502/ [Concomitant]
     Indication: PRODUCT USED FOR UNKNOWN INDICATION

REACTIONS (6)
  - EXTRASYSTOLES [None]
  - VERTIGO [None]
  - ERYTHEMA [None]
  - HYPERTENSION [None]
  - HEART RATE INCREASED [None]
  - SCOTOMA [None]
